FAERS Safety Report 6380997-3 (Version None)
Quarter: 2009Q3

REPORT INFORMATION
  Report Type: 
  Country: None (occurrence: None)
  Receive Date: 20090929
  Receipt Date: 20081103
  Transmission Date: 20100115
  Serious: Yes (Hospitalization, Disabling)
  Sender: FDA-Public Use
  Company Number: A0752004A

PATIENT
  Age: 7 Year
  Sex: Male
  Weight: 27.3 kg

DRUGS (5)
  1. LAMOTRIGINE [Suspect]
     Dosage: 75MG TWICE PER DAY
     Route: 048
     Dates: start: 20080801, end: 20081002
  2. LEVOXYL [Concomitant]
     Indication: CONGENITAL HYPOTHYROIDISM
     Dosage: 88MCG PER DAY
     Route: 048
     Dates: start: 20010401
  3. TRILEPTAL [Concomitant]
     Dosage: 600MG TWICE PER DAY
     Route: 048
     Dates: start: 20070101
  4. MIRALAX [Concomitant]
     Route: 048
  5. BENEFIBER [Concomitant]
     Dosage: 1TBS PER DAY
     Route: 048

REACTIONS (6)
  - APHASIA [None]
  - CONVULSION [None]
  - DEPRESSED LEVEL OF CONSCIOUSNESS [None]
  - IMMOBILE [None]
  - POSTICTAL STATE [None]
  - STARING [None]
